FAERS Safety Report 21312074 (Version 1)
Quarter: 2022Q3

REPORT INFORMATION
  Report Type: Spontaneous
  Country: US (occurrence: None)
  Receive Date: 20220909
  Receipt Date: 20220909
  Transmission Date: 20221027
  Serious: No
  Sender: FDA-Public Use
  Company Number: US-ARIS GLOBAL-202204-0636

PATIENT
  Age: 61 Year
  Sex: Female
  Weight: 56.750 kg

DRUGS (13)
  1. OXERVATE [Suspect]
     Active Substance: CENEGERMIN-BKBJ
     Indication: Neurotrophic keratopathy
     Route: 047
     Dates: start: 20220406, end: 20220601
  2. OXERVATE [Suspect]
     Active Substance: CENEGERMIN-BKBJ
     Indication: Hypoaesthesia eye
  3. OXERVATE [Suspect]
     Active Substance: CENEGERMIN-BKBJ
     Indication: Punctate keratitis
  4. PRONE ROOT SOURCE SCALP BALANCE AND GROWTH BOOST [Concomitant]
  5. FISH OIL [Concomitant]
     Active Substance: FISH OIL
     Dosage: 100-160 MG
  6. ARTIFICIAL TEARS [Concomitant]
     Active Substance: GLYCERIN\HYPROMELLOSES\POLYETHYLENE GLYCOL 400
  7. SYSTANE (HYPROMELLOSE 2910 (4000 MPA.S)) [Concomitant]
     Active Substance: HYPROMELLOSE 2910 (4000 MPA.S)
     Dosage: 0.3 %-0.4% DROPS GEL
  8. LUTEIN [Concomitant]
     Active Substance: LUTEIN
  9. CALCIUM [Concomitant]
     Active Substance: CALCIUM
     Dosage: (500) 1250
  10. ESTRADIOL [Concomitant]
     Active Substance: ESTRADIOL
  11. ZYRTEC [Concomitant]
     Active Substance: CETIRIZINE HYDROCHLORIDE
  12. PROGESTERONE [Concomitant]
     Active Substance: PROGESTERONE
  13. BIOTIN [Concomitant]
     Active Substance: BIOTIN

REACTIONS (7)
  - Wrong technique in product usage process [Unknown]
  - Product dose omission issue [Unknown]
  - Eye pain [Unknown]
  - Lacrimation increased [Unknown]
  - Ocular discomfort [Unknown]
  - Eye irritation [Unknown]
  - Gastrointestinal disorder [Recovered/Resolved]

NARRATIVE: CASE EVENT DATE: 20220401
